FAERS Safety Report 5498728-8 (Version None)
Quarter: 2007Q4

REPORT INFORMATION
  Report Type: 
  Country: None (occurrence: None)
  Receive Date: 20071026
  Receipt Date: 20070711
  Transmission Date: 20080405
  Serious: No
  Sender: FDA-Public Use
  Company Number: A0663324A

PATIENT
  Age: 57 Year
  Sex: Female

DRUGS (10)
  1. ADVAIR DISKUS 100/50 [Suspect]
     Indication: CHRONIC OBSTRUCTIVE PULMONARY DISEASE
     Dosage: 1PUFF TWICE PER DAY
     Route: 055
     Dates: start: 20070501
  2. SPIRIVA [Concomitant]
  3. LEVOXYL [Concomitant]
  4. PREVACID [Concomitant]
  5. CLONAZEPAM [Concomitant]
  6. TOPROL-XL [Concomitant]
  7. TYLENOL (CAPLET) [Concomitant]
  8. WARFARIN [Concomitant]
  9. PROZAC [Concomitant]
  10. CRESTOR [Concomitant]

REACTIONS (4)
  - DRUG LEVEL DECREASED [None]
  - DRY MOUTH [None]
  - DRY THROAT [None]
  - INCREASED BRONCHIAL SECRETION [None]
